FAERS Safety Report 25207767 (Version 1)
Quarter: 2025Q2

REPORT INFORMATION
  Report Type: Spontaneous
  Country: US (occurrence: None)
  Receive Date: 20250415
  Receipt Date: 20250415
  Transmission Date: 20250716
  Serious: Yes (unspecified)
  Sender: FDA-CTU
  Company Number: None

PATIENT
  Age: 28 Year
  Sex: Female

DRUGS (1)
  1. .DELTA.9-TETRAHYDROCANNABINOL\CANNABIDIOL\HERBALS [Suspect]
     Active Substance: .DELTA.9-TETRAHYDROCANNABINOL\CANNABIDIOL\HERBALS

REACTIONS (7)
  - Dizziness [None]
  - Headache [None]
  - Ocular hyperaemia [None]
  - Glassy eyes [None]
  - Aphasia [None]
  - Disorientation [None]
  - Incorrect dose administered [None]

NARRATIVE: CASE EVENT DATE: 20250217
